FAERS Safety Report 12903826 (Version 6)
Quarter: 2017Q1

REPORT INFORMATION
  Report Type: Report from Study
  Country: US (occurrence: US)
  Receive Date: 20161102
  Receipt Date: 20170314
  Transmission Date: 20170428
  Serious: Yes (Other)
  Sender: FDA-Public Use
  Company Number: US-BAYER-2016-206570

PATIENT
  Age: 68 Year
  Sex: Male
  Weight: 62.13 kg

DRUGS (13)
  1. STIVARGA [Interacting]
     Active Substance: REGORAFENIB
     Indication: RECTAL CANCER METASTATIC
     Dosage: 160 MG DAILY DOSE (21 DAYS ON AND 7 DAYS OFF)
     Route: 048
     Dates: start: 20161026, end: 20170118
  2. NEURONTIN [Concomitant]
     Active Substance: GABAPENTIN
  3. STIVARGA [Suspect]
     Active Substance: REGORAFENIB
     Indication: RECTAL CANCER METASTATIC
     Dosage: 160 MG DAILY DOSE
     Route: 048
     Dates: start: 20160929, end: 20161018
  4. FERROUS SULFATE. [Concomitant]
     Active Substance: FERROUS SULFATE
     Route: 048
  5. CEFTRIAXONE. [Concomitant]
     Active Substance: CEFTRIAXONE
  6. ATIVAN [Concomitant]
     Active Substance: LORAZEPAM
  7. STIVARGA [Interacting]
     Active Substance: REGORAFENIB
     Indication: LUNG ADENOCARCINOMA
     Dosage: UNK
     Dates: end: 20161026
  8. WARFARIN [Concomitant]
     Active Substance: WARFARIN
  9. CALCIUM CARBONATE W/COLECALCIFEROL [Concomitant]
     Active Substance: CALCIUM CARBONATE\CHOLECALCIFEROL
     Dosage: CALCIUM 600- VIT D3 400 CAPLET
  10. VITAMIN C [Concomitant]
     Active Substance: ASCORBIC ACID
  11. POTASSIUM CHLORIDE. [Concomitant]
     Active Substance: POTASSIUM CHLORIDE
  12. COUMADIN [Interacting]
     Active Substance: WARFARIN SODIUM
  13. IMODIUM [Concomitant]
     Active Substance: LOPERAMIDE HYDROCHLORIDE
     Route: 048

REACTIONS (18)
  - Hypocoagulable state [None]
  - Paralysis [None]
  - Epistaxis [None]
  - Enterocutaneous fistula [None]
  - Rectal fissure [None]
  - Haemorrhagic anaemia [None]
  - Haematuria [None]
  - Cough [None]
  - International normalised ratio increased [Recovered/Resolved]
  - Gastrointestinal haemorrhage [None]
  - Urostomy [None]
  - Malaise [None]
  - Asthenia [None]
  - Haematochezia [None]
  - Anorectal discomfort [None]
  - Bacteriuria [None]
  - Oedema peripheral [None]
  - Drug ineffective [None]

NARRATIVE: CASE EVENT DATE: 201610
